FAERS Safety Report 4434961-1 (Version None)
Quarter: 2004Q3

REPORT INFORMATION
  Report Type: 
  Country: None (occurrence: None)
  Receive Date: 20040827
  Receipt Date: 20040817
  Transmission Date: 20050211
  Serious: Yes (Hospitalization)
  Sender: FDA-Public Use
  Company Number: 200413083FR

PATIENT
  Age: 87 Year
  Sex: Male
  Weight: 55 kg

DRUGS (5)
  1. LASILIX 40 MG [Suspect]
     Indication: HYPERTENSION
     Route: 048
     Dates: end: 20040704
  2. ATACAND [Suspect]
     Indication: HYPERTENSION
     Route: 048
  3. ALDACTONE [Suspect]
     Route: 048
     Dates: end: 20040704
  4. ZYLORIC [Concomitant]
     Route: 048
  5. ASPIRIN [Concomitant]
     Route: 048

REACTIONS (18)
  - CARDIAC FAILURE [None]
  - CARDIOMEGALY [None]
  - CHEST PAIN [None]
  - DEHYDRATION [None]
  - DRUG INTERACTION [None]
  - FALL [None]
  - FUNGAL SKIN INFECTION [None]
  - HEMIPARESIS [None]
  - HYPERKALAEMIA [None]
  - HYPONATRAEMIA [None]
  - HYPOTENSION [None]
  - ISCHAEMIC STROKE [None]
  - NAUSEA [None]
  - OEDEMA PERIPHERAL [None]
  - RENAL FAILURE ACUTE [None]
  - RIB FRACTURE [None]
  - THIRST [None]
  - VOMITING [None]
